FAERS Safety Report 14946425 (Version 1)
Quarter: 2018Q2

REPORT INFORMATION
  Report Type: Report from Study
  Country: US (occurrence: US)
  Receive Date: 20180529
  Receipt Date: 20180529
  Transmission Date: 20180711
  Serious: Yes (Other)
  Sender: FDA-Public Use
  Company Number: US-ASTELLAS-2018US018153

PATIENT
  Sex: Male

DRUGS (1)
  1. ISAVUCONAZOLE [Suspect]
     Active Substance: ISAVUCONAZOLE
     Indication: LUNG INFECTION
     Dosage: 2 DF (CAPSULES), ONCE DAILY
     Route: 048
     Dates: start: 20170922, end: 20180322

REACTIONS (2)
  - Lung infection [Unknown]
  - Off label use [Unknown]
